FAERS Safety Report 9355332 (Version 1)
Quarter: 2013Q2

REPORT INFORMATION
  Report Type: Spontaneous
  Country: US (occurrence: US)
  Receive Date: 20130619
  Receipt Date: 20130619
  Transmission Date: 20140414
  Serious: Yes (Death, Other)
  Sender: FDA-Public Use
  Company Number: US-JNJFOC-20130602786

PATIENT
  Sex: Male

DRUGS (6)
  1. KETOCONAZOLE [Suspect]
     Indication: PROSTATE CANCER
     Dosage: IN WEEKS 1, 3 AND 5
     Route: 048
  2. DOXORUBICIN [Suspect]
     Indication: PROSTATE CANCER
     Dosage: AS A 24 HOUR INTRAVENOUS INFUSION
     Route: 042
  3. DOCETAXEL [Suspect]
     Indication: PROSTATE CANCER
     Dosage: WEEK 2, 4 AND 6
     Route: 042
  4. ESTRAMUSTINE [Suspect]
     Indication: PROSTATE CANCER
     Dosage: FOR 1 WEEK FOR WEEKS 2, 4 AND 6
     Route: 048
  5. LEUPROLIDE ACETATE [Suspect]
     Indication: ANTIANDROGEN THERAPY
     Dosage: WITHIN 3 MONTHS OF CHEMOTHERAPY
     Route: 065
  6. BICALUTAMIDE [Suspect]
     Indication: ANTIANDROGEN THERAPY
     Dosage: AT WEEK 25
     Route: 065

REACTIONS (18)
  - Death [Fatal]
  - Prostate cancer [Fatal]
  - Hypertension [Unknown]
  - Infection [Unknown]
  - Anaemia [Unknown]
  - Blood alkaline phosphatase increased [Unknown]
  - Alanine aminotransferase increased [Unknown]
  - Aspartate aminotransferase increased [Unknown]
  - Blood bicarbonate decreased [Unknown]
  - Hyperkalaemia [Unknown]
  - Hypoalbuminaemia [Unknown]
  - Hypocalcaemia [Unknown]
  - Hypoglycaemia [Unknown]
  - Hypokalaemia [Unknown]
  - Hypophosphataemia [Unknown]
  - Lymphopenia [Unknown]
  - Leukopenia [Unknown]
  - Off label use [Unknown]
